FAERS Safety Report 20410771 (Version 1)
Quarter: 2022Q1

REPORT INFORMATION
  Report Type: Spontaneous
  Country: US (occurrence: None)
  Receive Date: 20220131
  Receipt Date: 20220131
  Transmission Date: 20220423
  Serious: Yes (unspecified)
  Sender: FDA-Public Use
  Company Number: None

PATIENT
  Age: 15 Year
  Sex: Female
  Weight: 65.25 kg

DRUGS (1)
  1. BENOXINATE HYDROCHLORIDE\FLUORESCEIN SODIUM [Suspect]
     Active Substance: BENOXINATE HYDROCHLORIDE\FLUORESCEIN SODIUM
     Indication: Hypoaesthesia eye
     Route: 047
     Dates: start: 20220131, end: 20220131

REACTIONS (8)
  - Dizziness [None]
  - Dizziness [None]
  - Presyncope [None]
  - Nausea [None]
  - Vomiting [None]
  - Pallor [None]
  - Nasopharyngitis [None]
  - Pulse abnormal [None]

NARRATIVE: CASE EVENT DATE: 20220131
